FAERS Safety Report 5223994-3 (Version None)
Quarter: 2007Q1

REPORT INFORMATION
  Report Type: 
  Country: None (occurrence: None)
  Receive Date: 20070130
  Receipt Date: 20070126
  Transmission Date: 20070707
  Serious: Yes (Other)
  Sender: FDA-Public Use
  Company Number: CH-GLAXOSMITHKLINE-B0456279A

PATIENT
  Age: 14 Month
  Sex: Male

DRUGS (1)
  1. AUGMENTIN '125' [Suspect]
     Route: 048
     Dates: start: 20061001, end: 20061001

REACTIONS (2)
  - HYPERSOMNIA [None]
  - LOSS OF CONSCIOUSNESS [None]
